FAERS Safety Report 24341509 (Version 4)
Quarter: 2024Q4

REPORT INFORMATION
  Report Type: Spontaneous
  Country: DE (occurrence: DE)
  Receive Date: 20240920
  Receipt Date: 20241108
  Transmission Date: 20250114
  Serious: Yes (Other)
  Sender: SANDOZ
  Company Number: DE-ROCHE-2229169

PATIENT
  Age: 56 Year
  Sex: Female
  Weight: 56 kg

DRUGS (9)
  1. DOCETAXEL [Suspect]
     Active Substance: DOCETAXEL
     Dosage: 152 MG, UNK
     Route: 065
     Dates: start: 20180821
  2. DOCETAXEL [Suspect]
     Active Substance: DOCETAXEL
     Indication: Breast cancer
     Dosage: LAST ADMINISTRATION OF DOCETAXEL PRIOR TO THE EVENT WAS ON 21/AUG/2018  FREQUENCY TEXT:CYCLICALUNK
     Route: 065
  3. DOCETAXEL [Suspect]
     Active Substance: DOCETAXEL
     Dosage: LAST ADMINISTRATION OF DOCETAXEL PRIOR TO THE EVENT WAS ON 21/AUG/2018  FREQUENCY TEXT:CYCLICALUNK
     Route: 065
     Dates: start: 20180619
  4. PERTUZUMAB [Suspect]
     Active Substance: PERTUZUMAB
     Indication: Breast cancer
     Dosage: LAST ADMINISTRATION OF PERTUZUMAB PRIOR TO THE EVENT WAS ON 21/AUG/2018  FREQUENCY TEXT:CYCLICALUNK
     Route: 065
  5. PERTUZUMAB [Suspect]
     Active Substance: PERTUZUMAB
     Dosage: LAST ADMINISTRATION OF PERTUZUMAB PRIOR TO THE EVENT WAS ON 21/AUG/2018  FREQUENCY TEXT:CYCLICALUNK
     Route: 065
     Dates: start: 20180619
  6. PERTUZUMAB [Suspect]
     Active Substance: PERTUZUMAB
     Dosage: LAST ADMINISTRATION OF PERTUZUMAB PRIOR TO THE EVENT WAS ON 21/AUG/2018  FREQUENCY TEXT:CYCLICALUNK
     Route: 065
     Dates: start: 20180821
  7. TRASTUZUMAB [Suspect]
     Active Substance: TRASTUZUMAB
     Dosage: 336 MG, CYCLIC
     Route: 042
     Dates: start: 20180619, end: 20180731
  8. TRASTUZUMAB [Suspect]
     Active Substance: TRASTUZUMAB
     Indication: Breast cancer
     Dosage: 336 MG, CYCLICAL
     Route: 042
  9. TRASTUZUMAB [Suspect]
     Active Substance: TRASTUZUMAB
     Dosage: ON 21/AUG/2018, SHE RECEIVED LAST ADMINISTRATION PRIOR TO ADVERSE EVENT.  FREQUENCY TEXT:CYCLICAL
     Route: 042
     Dates: start: 20180619, end: 20180710

REACTIONS (3)
  - Mastitis [Not Recovered/Not Resolved]
  - Soft tissue infection [Recovering/Resolving]
  - Oedema peripheral [Recovered/Resolved]

NARRATIVE: CASE EVENT DATE: 20180723
